FAERS Safety Report 4755212-4 (Version None)
Quarter: 2005Q3

REPORT INFORMATION
  Report Type: 
  Country: None (occurrence: None)
  Receive Date: 20050826
  Receipt Date: 20041105
  Transmission Date: 20060218
  Serious: Yes (Hospitalization)
  Sender: FDA-Public Use
  Company Number: KII-2001-0004856

PATIENT
  Age: 79 Year
  Sex: Female

DRUGS (2)
  1. OXYCONTIN [Suspect]
     Indication: DRUG USE FOR UNKNOWN INDICATION
     Dosage: 20 MG, BID
  2. VICODIN [Suspect]
     Indication: DRUG USE FOR UNKNOWN INDICATION
     Dosage: 2 TABLET, Q6 H

REACTIONS (2)
  - CONDITION AGGRAVATED [None]
  - CONSTIPATION [None]
